FAERS Safety Report 11013637 (Version 2)
Quarter: 2015Q2

REPORT INFORMATION
  Report Type: Spontaneous
  Country: US (occurrence: US)
  Receive Date: 20150411
  Receipt Date: 20150525
  Transmission Date: 20150821
  Serious: No
  Sender: FDA-Public Use
  Company Number: US-JNJFOC-20140811148

PATIENT
  Age: 37 Year
  Sex: Female

DRUGS (6)
  1. REMICADE [Suspect]
     Active Substance: INFLIXIMAB
     Indication: COLITIS ULCERATIVE
     Route: 042
     Dates: start: 20130823
  2. UCERIS [Concomitant]
     Active Substance: BUDESONIDE
     Route: 065
  3. REMICADE [Suspect]
     Active Substance: INFLIXIMAB
     Indication: COLITIS ULCERATIVE
     Route: 042
     Dates: end: 20140708
  4. REMICADE [Suspect]
     Active Substance: INFLIXIMAB
     Indication: COLITIS ULCERATIVE
     Route: 042
     Dates: start: 201405
  5. PURINETHOL [Concomitant]
     Active Substance: MERCAPTOPURINE
     Route: 065
  6. COLAZAL [Concomitant]
     Active Substance: BALSALAZIDE DISODIUM
     Route: 065

REACTIONS (1)
  - Colitis ulcerative [Unknown]

NARRATIVE: CASE EVENT DATE: 20140626
